FAERS Safety Report 11730185 (Version 1)
Quarter: 2015Q4

REPORT INFORMATION
  Report Type: Report from Study
  Country: US (occurrence: US)
  Receive Date: 20151112
  Receipt Date: 20151112
  Transmission Date: 20160304
  Serious: Yes (Other)
  Sender: FDA-Public Use
  Company Number: US-TAKEDA-2015MPI007274

PATIENT
  Sex: Male
  Weight: 78.91 kg

DRUGS (10)
  1. ONDASETRON                         /00955301/ [Concomitant]
     Dosage: 4 MG, UNK
  2. POTASSIUM CHLORIDE. [Concomitant]
     Active Substance: POTASSIUM CHLORIDE
     Dosage: 10 MEQ, UNK
  3. OXYMORPHONE [Concomitant]
     Active Substance: OXYMORPHONE
     Dosage: 30 MG, UNK
  4. AMOXICILLIN. [Concomitant]
     Active Substance: AMOXICILLIN
     Dosage: 875 MG, UNK
  5. FUROSEMIDE. [Concomitant]
     Active Substance: FUROSEMIDE
     Dosage: 40 MG, UNK
  6. MELOXICAM. [Concomitant]
     Active Substance: MELOXICAM
     Dosage: 15 MG, UNK
  7. GABAPENTIN. [Concomitant]
     Active Substance: GABAPENTIN
     Dosage: 100 MG, UNK
  8. ACYCLOVIR                          /00587301/ [Concomitant]
     Active Substance: ACYCLOVIR
     Dosage: 400 MG, UNK
  9. VELCADE [Suspect]
     Active Substance: BORTEZOMIB
     Indication: PLASMA CELL MYELOMA
     Dosage: UNK
     Route: 058
  10. OXYCODONE [Concomitant]
     Active Substance: OXYCODONE
     Dosage: 15 MG, UNK

REACTIONS (11)
  - Nausea [Unknown]
  - Fatigue [Unknown]
  - Pneumonia [Unknown]
  - Hyperglycaemia [Unknown]
  - Thrombocytopenia [Unknown]
  - Dehydration [Unknown]
  - Vomiting [Unknown]
  - Asthenia [Unknown]
  - Rib fracture [Unknown]
  - Pain [Unknown]
  - Anaemia [Unknown]
